FAERS Safety Report 22006994 (Version 1)
Quarter: 2023Q1

REPORT INFORMATION
  Report Type: Spontaneous
  Country: US (occurrence: US)
  Receive Date: 20230217
  Receipt Date: 20230217
  Transmission Date: 20230418
  Serious: No
  Sender: FDA-Public Use
  Company Number: US-PFIZER INC-202201304016

PATIENT
  Age: 81 Year
  Sex: Male
  Weight: 78.47 kg

DRUGS (5)
  1. VYNDAMAX [Interacting]
     Active Substance: TAFAMIDIS
     Indication: Amyloidosis
     Dosage: 61 MG
     Route: 048
     Dates: start: 202207
  2. VYNDAMAX [Interacting]
     Active Substance: TAFAMIDIS
     Dosage: 61 MG
     Route: 048
  3. PREDNISONE [Interacting]
     Active Substance: PREDNISONE
     Indication: Giant cell arteritis
     Dosage: UNK
     Dates: start: 202301
  4. PREDNISONE [Interacting]
     Active Substance: PREDNISONE
     Indication: Arthritis
  5. ASPIRIN [Concomitant]
     Active Substance: ASPIRIN
     Dosage: UNK (EVERY OTHER DAY)

REACTIONS (9)
  - Headache [Unknown]
  - Balance disorder [Unknown]
  - Giant cell arteritis [Unknown]
  - Arthritis [Unknown]
  - Dyspnoea exertional [Unknown]
  - Drug interaction [Unknown]
  - Limb discomfort [Unknown]
  - Musculoskeletal discomfort [Unknown]
  - Off label use [Unknown]

NARRATIVE: CASE EVENT DATE: 20220701
